FAERS Safety Report 20269365 (Version 1)
Quarter: 2022Q1

REPORT INFORMATION
  Report Type: Spontaneous
  Country: CN (occurrence: CN)
  Receive Date: 20220101
  Receipt Date: 20220101
  Transmission Date: 20220424
  Serious: Yes (Hospitalization, Other)
  Sender: FDA-Public Use
  Company Number: CN-UNITED THERAPEUTICS-UNT-2021-026439

PATIENT
  Age: 70 Year
  Sex: Male

DRUGS (11)
  1. REMODULIN [Suspect]
     Active Substance: TREPROSTINIL
     Indication: Pulmonary hypertension
     Dosage: UNK, CONTINUING
     Route: 058
  2. NOREPINEPHRINE [Concomitant]
     Active Substance: NOREPINEPHRINE
     Indication: Prophylaxis
     Dosage: 0.05 ?G/KG/MIN
     Route: 065
  3. NOREPINEPHRINE [Concomitant]
     Active Substance: NOREPINEPHRINE
     Dosage: 0.06 ?G/KG/MIN
     Route: 065
  4. NOREPINEPHRINE [Concomitant]
     Active Substance: NOREPINEPHRINE
     Dosage: 0.1 ?G/KG/MIN
     Route: 065
  5. EPINEPHRINE [Concomitant]
     Active Substance: EPINEPHRINE
     Indication: Prophylaxis
     Dosage: 0.02 ?G/KG/MIN
     Route: 065
  6. EPINEPHRINE [Concomitant]
     Active Substance: EPINEPHRINE
     Dosage: 0.05 ?G/KG/MIN
     Route: 065
  7. EPINEPHRINE [Concomitant]
     Active Substance: EPINEPHRINE
     Dosage: 0.06 ?G/KG/MIN
     Route: 065
  8. ISOPROTERENOL [Concomitant]
     Active Substance: ISOPROTERENOL
     Indication: Prophylaxis
     Dosage: 0.02 ?G/KG/MIN
     Route: 065
  9. ISOPROTERENOL [Concomitant]
     Active Substance: ISOPROTERENOL
     Dosage: 0.05 ?G/KG/MIN
     Route: 065
  10. ISOPROTERENOL [Concomitant]
     Active Substance: ISOPROTERENOL
     Dosage: 0.06 ?G/KG/MIN
     Route: 065
  11. NITRIC OXIDE [Concomitant]
     Active Substance: NITRIC OXIDE
     Indication: Pulmonary hypertension
     Dosage: UNK

REACTIONS (4)
  - Myocardial infarction [Unknown]
  - Cerebral ischaemia [Unknown]
  - Pulmonary hypertension [Unknown]
  - Off label use [Unknown]
